FAERS Safety Report 14266316 (Version 4)
Quarter: 2018Q1

REPORT INFORMATION
  Report Type: Spontaneous
  Country: NL (occurrence: NL)
  Receive Date: 20171210
  Receipt Date: 20180221
  Transmission Date: 20180508
  Serious: Yes (Death, Life-Threatening, Hospitalization, Other)
  Sender: FDA-Public Use
  Company Number: PHHY2017NL126176

PATIENT
  Age: 64 Year
  Sex: Male

DRUGS (13)
  1. POTASSIUM CHLORIDE. [Suspect]
     Active Substance: POTASSIUM CHLORIDE
     Indication: PRODUCT USED FOR UNKNOWN INDICATION
     Dosage: UNK
     Route: 042
  2. TOBRAMYCIN. [Concomitant]
     Active Substance: TOBRAMYCIN
     Indication: ENTEROCOCCAL INFECTION
     Dosage: UNK
     Route: 065
  3. GLUCOSE [Suspect]
     Active Substance: DEXTROSE
     Indication: PRODUCT USED FOR UNKNOWN INDICATION
     Dosage: UNK
     Route: 042
  4. AMOXICILLIN. [Concomitant]
     Active Substance: AMOXICILLIN
     Indication: ENTEROCOCCAL INFECTION
     Dosage: UNK
     Route: 065
  5. ASCORBIC ACID. [Concomitant]
     Active Substance: ASCORBIC ACID
     Indication: WERNICKE^S ENCEPHALOPATHY
     Dosage: UNK
     Route: 065
  6. ENALAPRIL, HYDROCHLOROTHIAZIDE [Suspect]
     Active Substance: ENALAPRIL\HYDROCHLOROTHIAZIDE
     Indication: PRODUCT USED FOR UNKNOWN INDICATION
     Dosage: ENALAPRIL 20 MG HYDROCHLOROTHIAZIDE 12.5 MG
     Route: 048
  7. SODIUM CHLORIDE. [Suspect]
     Active Substance: SODIUM CHLORIDE
     Indication: BLOOD SODIUM INCREASED
     Dosage: 1500 ML, UNK
     Route: 042
  8. SODIUM CHLORIDE. [Suspect]
     Active Substance: SODIUM CHLORIDE
     Dosage: 2000 ML, UNK
     Route: 042
  9. TOBRAMYCIN. [Concomitant]
     Active Substance: TOBRAMYCIN
     Indication: SEPSIS
  10. VITAMIN B [Concomitant]
     Active Substance: VITAMIN B
     Indication: WERNICKE^S ENCEPHALOPATHY
     Dosage: UNK
     Route: 065
  11. SODIUM CHLORIDE. [Suspect]
     Active Substance: SODIUM CHLORIDE
     Dosage: 0.45 %, UNK
     Route: 042
  12. LACTATED RINGERS SOLUTION [Suspect]
     Active Substance: CALCIUM CHLORIDE\POTASSIUM CHLORIDE\SODIUM CHLORIDE\SODIUM LACTATE
     Indication: INTERNAL HAEMORRHAGE
     Dosage: 500 ML, UNK
     Route: 042
  13. THIAMINE. [Concomitant]
     Active Substance: THIAMINE
     Indication: WERNICKE^S ENCEPHALOPATHY
     Dosage: UNK
     Route: 065

REACTIONS (13)
  - Hepatic enzyme increased [Fatal]
  - Neurological decompensation [Fatal]
  - Balance disorder [Fatal]
  - Hyponatraemia [Fatal]
  - Tremor [Fatal]
  - Ataxia [Fatal]
  - Hypokalaemia [Fatal]
  - Hypovolaemia [Fatal]
  - Speech disorder [Fatal]
  - Locked-in syndrome [Fatal]
  - Dysphagia [Fatal]
  - Osmotic demyelination syndrome [Fatal]
  - Acute kidney injury [Fatal]
